FAERS Safety Report 6962119-0 (Version None)
Quarter: 2010Q3

REPORT INFORMATION
  Report Type: 
  Country: None (occurrence: None)
  Receive Date: 20100830
  Receipt Date: 20100820
  Transmission Date: 20110219
  Serious: Yes (Life-Threatening, Hospitalization)
  Sender: FDA-Public Use
  Company Number: AUR-APU-2010-02104

PATIENT
  Age: 40 Year
  Sex: Male

DRUGS (1)
  1. CEFUROXIME AXETIL [Suspect]
     Dosage: 500MG - ORAL
     Route: 048

REACTIONS (4)
  - ARTERIOSPASM CORONARY [None]
  - CHEST PAIN [None]
  - KOUNIS SYNDROME [None]
  - MYOCARDIAL ISCHAEMIA [None]
